FAERS Safety Report 10948652 (Version 1)
Quarter: 2015Q1

REPORT INFORMATION
  Report Type: Spontaneous
  Country: GB (occurrence: GB)
  Receive Date: 20150324
  Receipt Date: 20150324
  Transmission Date: 20150721
  Serious: Yes (Other)
  Sender: FDA-Public Use
  Company Number: GB-TEVA-548254ACC

PATIENT
  Age: 91 Year
  Sex: Male
  Weight: 61 kg

DRUGS (9)
  1. ASPIRIN. [Concomitant]
     Active Substance: ASPIRIN
     Dosage: 1 DOSAGE FORMS DAILY;
     Dates: start: 20141121
  2. GANFORT [Concomitant]
     Active Substance: BIMATOPROST\TIMOLOL
     Dosage: 2 DOSAGE FORMS DAILY; ONE DROP ONCE DAILY BOTH EYES; DAILY DOSE: 2 DOSAGE FORMS
     Route: 050
     Dates: start: 20141121
  3. INDORAMIN [Concomitant]
     Active Substance: INDORAMIN
     Dosage: 1 DOSAGE FORMS DAILY;
     Dates: start: 20141121
  4. LOSARTAN [Suspect]
     Active Substance: LOSARTAN
     Dosage: 1 DOSAGE FORMS DAILY;
     Dates: start: 20150114
  5. RAMIPRIL. [Concomitant]
     Active Substance: RAMIPRIL
     Dosage: 3 DOSAGE FORMS DAILY; 3 DAILY; DAILY DOSE: 3 DOSAGE FORMS
  6. ANUSOL [Concomitant]
     Dosage: APPLY TWICE A DAY AFTER A BOWEL MOVEMENT
     Dates: start: 20141121
  7. RAMIPRIL. [Concomitant]
     Active Substance: RAMIPRIL
     Dosage: 2 DOSAGE FORMS DAILY; 2 DAILY; DAILY DOSE: 2 DOSAGE FORMS
     Dates: end: 20150101
  8. ADCAL [Concomitant]
     Dosage: 4 DOSAGE FORMS DAILY;
     Dates: start: 20141121
  9. RAMIPRIL. [Concomitant]
     Active Substance: RAMIPRIL
     Dosage: 2 DAILY UNTIL 1ST JAN 2015 THEN 3 DAILY
     Dates: start: 20141121, end: 20150114

REACTIONS (2)
  - Scintillating scotoma [Recovered/Resolved]
  - Visual impairment [Recovered/Resolved]

NARRATIVE: CASE EVENT DATE: 20150129
